FAERS Safety Report 8162020-3 (Version None)
Quarter: 2012Q1

REPORT INFORMATION
  Report Type: 
  Country: None (occurrence: None)
  Receive Date: 20120224
  Receipt Date: 20110518
  Transmission Date: 20120608
  Serious: No
  Sender: FDA-Public Use
  Company Number: US-BRISTOL-MYERS SQUIBB COMPANY-15718208

PATIENT
  Age: 34 Year
  Sex: Female

DRUGS (2)
  1. GLUCOPHAGE [Suspect]
     Indication: DIABETES MELLITUS
     Dosage: STARTED 6 YEARS AGO.
     Route: 048
     Dates: start: 20050101, end: 20110101
  2. GLYCEROL 2.6% [Concomitant]
     Dosage: BETA-GLYCEROL

REACTIONS (5)
  - HYPERHIDROSIS [None]
  - MUSCLE SPASMS [None]
  - URTICARIA [None]
  - ABDOMINAL DISCOMFORT [None]
  - NAUSEA [None]
